FAERS Safety Report 16406130 (Version 1)
Quarter: 2019Q2

REPORT INFORMATION
  Report Type: Report from Study
  Country: US (occurrence: US)
  Receive Date: 20190607
  Receipt Date: 20190607
  Transmission Date: 20190711
  Serious: Yes (Other)
  Sender: FDA-Public Use
  Company Number: US-BAYER-2019-025426

PATIENT
  Age: 48 Year
  Sex: Male

DRUGS (2)
  1. STIVARGA [Suspect]
     Active Substance: REGORAFENIB
     Indication: COLORECTAL CANCER
     Dosage: 120 MG, 21 DAYS ON, 7 DAYS OFF
     Route: 048
     Dates: start: 20190121, end: 2019
  2. STIVARGA [Suspect]
     Active Substance: REGORAFENIB
     Indication: COLORECTAL CANCER
     Dosage: 120 MG DAILY FOR 21 DAYS THEN OFF FOR 7 DAYS
     Route: 048
     Dates: start: 20190303, end: 20190513

REACTIONS (8)
  - Decubitus ulcer [Not Recovered/Not Resolved]
  - Dermal cyst [Recovering/Resolving]
  - General physical health deterioration [None]
  - Rash [Not Recovered/Not Resolved]
  - Hepatic failure [None]
  - Off label use [None]
  - Scrotal ulcer [None]
  - Gastrooesophageal reflux disease [Not Recovered/Not Resolved]

NARRATIVE: CASE EVENT DATE: 2019
